FAERS Safety Report 11869881 (Version 1)
Quarter: 2015Q4

REPORT INFORMATION
  Report Type: Spontaneous
  Country: FR (occurrence: FR)
  Receive Date: 20151228
  Receipt Date: 20151228
  Transmission Date: 20160305
  Serious: Yes (Other)
  Sender: FDA-Public Use
  Company Number: FR-ACCORD-036548

PATIENT
  Age: 64 Year
  Sex: Male

DRUGS (3)
  1. FLUOROURACIL ACCORD [Suspect]
     Active Substance: FLUOROURACIL
     Indication: SQUAMOUS CELL CARCINOMA OF THE TONGUE
     Dosage: STRENGTH: 50 MG/ML
     Route: 042
     Dates: start: 20150708, end: 20151007
  2. CARBOPLATIN HOSPIRA [Suspect]
     Active Substance: CARBOPLATIN
     Indication: SQUAMOUS CELL CARCINOMA OF THE TONGUE
     Dosage: INJECTABLE SOLUTION FOR INFUSION,?STRENGTH: 10 MG/ML
     Route: 042
     Dates: start: 20150708, end: 20151017
  3. ERBITUX [Suspect]
     Active Substance: CETUXIMAB
     Indication: SQUAMOUS CELL CARCINOMA OF THE TONGUE
     Route: 042
     Dates: start: 20150617, end: 20150930

REACTIONS (6)
  - Anal erosion [Recovering/Resolving]
  - Xerosis [Recovering/Resolving]
  - Off label use [Unknown]
  - Aphthous ulcer [Recovering/Resolving]
  - Erythema [Recovering/Resolving]
  - Eyelid oedema [Recovering/Resolving]

NARRATIVE: CASE EVENT DATE: 20151007
